FAERS Safety Report 7326433-1 (Version None)
Quarter: 2011Q1

REPORT INFORMATION
  Report Type: 
  Country: None (occurrence: None)
  Receive Date: 20110302
  Receipt Date: 20110221
  Transmission Date: 20110831
  Serious: Yes (Death, Hospitalization)
  Sender: FDA-Public Use
  Company Number: FR-ELI_LILLY_AND_COMPANY-FR201102005451

PATIENT
  Sex: Male

DRUGS (4)
  1. SKENAN [Concomitant]
  2. METFORMINE [Concomitant]
     Dosage: 1000 MG, 1 CP IN THE MORNING AND EVENING
  3. GEMZAR [Suspect]
     Indication: PROSTATE CANCER METASTATIC
     Dosage: 1000 MG/M2, UNK
     Route: 042
     Dates: start: 20101004, end: 20101108
  4. OXALIPLATIN [Concomitant]

REACTIONS (6)
  - PNEUMONIA [None]
  - OFF LABEL USE [None]
  - RENAL FAILURE [None]
  - MULTI-ORGAN FAILURE [None]
  - ACUTE RESPIRATORY DISTRESS SYNDROME [None]
  - TOXICITY TO VARIOUS AGENTS [None]
